FAERS Safety Report 8232625-X (Version None)
Quarter: 2012Q1

REPORT INFORMATION
  Report Type: 
  Country: None (occurrence: None)
  Receive Date: 20120323
  Receipt Date: 20120309
  Transmission Date: 20120608
  Serious: Yes (Hospitalization)
  Sender: FDA-Public Use
  Company Number: US-UCBSA-045989

PATIENT
  Age: 66 Year
  Sex: Female
  Weight: 59.42 kg

DRUGS (18)
  1. LORTAB [Suspect]
     Indication: PAIN
     Dosage: EVERY 6 HOURS AS NEEDED (5MG/500MG)
     Dates: start: 20090402, end: 20090629
  2. MEGACE [Suspect]
     Indication: APPETITE DISORDER
     Route: 048
  3. ARTIFICIAL TEAR [Concomitant]
     Indication: DRY EYE
     Route: 047
     Dates: start: 20090309
  4. ASPIRIN [Concomitant]
     Indication: ARTHRALGIA
     Dates: end: 20090828
  5. RADIATION [Suspect]
     Dosage: QD 5 DAYS A WEEK, X 3WEEKS EXTERNAL BEAM 2D
     Dates: start: 20090316, end: 20090406
  6. COLACE [Suspect]
     Indication: CONSTIPATION
     Dates: start: 20090402, end: 20090828
  7. ACTONEL [Concomitant]
     Indication: OSTEOPOROSIS
     Dates: start: 20060523
  8. STUDY MEDICATION [Suspect]
     Indication: PROPHYLAXIS
     Dosage: WK1: 5 MG AM,WK2: 5 MG AM AND 5 MG PM,WK3: 10MG AM AND 5 MG PM,WK4-24:10 MG AM AND 10 MG PM
     Dates: start: 20090512, end: 20090707
  9. ASPIRIN [Concomitant]
     Indication: PAIN IN EXTREMITY
     Dates: end: 20090828
  10. RANITIDINE [Suspect]
     Indication: ULCER
     Dates: end: 20090828
  11. ZOFRAN [Suspect]
     Indication: NAUSEA
     Dosage: EVERY 6 HOURS AS NEEDED
     Route: 048
     Dates: end: 20090828
  12. ASPIRIN [Concomitant]
     Indication: HYPERTENSION
     Dates: end: 20090828
  13. SIMVASTATIN [Suspect]
     Indication: BLOOD CHOLESTEROL
     Dates: start: 20090227, end: 20090828
  14. FERGON [Suspect]
     Indication: IRON DEFICIENCY
     Route: 048
     Dates: start: 20090227, end: 20090828
  15. SUNITINIB MALATE [Suspect]
     Indication: RENAL CANCER
     Dates: start: 20090601, end: 20090828
  16. CIPROFLOXACIN HYDROCHLORIDE [Concomitant]
     Dosage: 1000 MG/10 ML
  17. PIOGLITAZONE HCL [Suspect]
     Indication: DIABETES MELLITUS
     Route: 048
     Dates: start: 20070604
  18. EXTRA STRENGTH TYLENOL [Concomitant]
     Route: 048

REACTIONS (8)
  - COGNITIVE DISORDER [None]
  - MALAISE [None]
  - ABDOMINAL PAIN [None]
  - HEADACHE [None]
  - FATIGUE [None]
  - VOMITING [None]
  - MENTAL STATUS CHANGES [None]
  - CONFUSIONAL STATE [None]
